FAERS Safety Report 24953294 (Version 1)
Quarter: 2025Q1

REPORT INFORMATION
  Report Type: Report from Study
  Country: BR (occurrence: BR)
  Receive Date: 20250211
  Receipt Date: 20250211
  Transmission Date: 20250409
  Serious: Yes (Death, Other)
  Sender: ROCHE
  Company Number: BR-ROCHE-10000202101

PATIENT
  Age: 58 Year
  Sex: Female

DRUGS (4)
  1. XELODA [Suspect]
     Active Substance: CAPECITABINE
     Indication: Breast cancer
     Route: 048
     Dates: end: 20220627
  2. PERJETA [Suspect]
     Active Substance: PERTUZUMAB
     Indication: Breast cancer
     Dosage: 15 NUMBER OF CYCLES PER REGIMEN
     Route: 042
     Dates: start: 20210205, end: 20220310
  3. HERCEPTIN [Suspect]
     Active Substance: TRASTUZUMAB
     Indication: Breast cancer
     Dosage: 17 CYCLES PER REGIMEN
     Route: 042
     Dates: start: 20210205, end: 20220627
  4. TAXOL [Suspect]
     Active Substance: PACLITAXEL
     Indication: Breast cancer
     Route: 042
     Dates: start: 20210316, end: 20210503

REACTIONS (2)
  - Pancytopenia [Not Recovered/Not Resolved]
  - Pleural effusion [Fatal]

NARRATIVE: CASE EVENT DATE: 20210503
